FAERS Safety Report 7369665-9 (Version None)
Quarter: 2011Q1

REPORT INFORMATION
  Report Type: 
  Country: None (occurrence: None)
  Receive Date: 20110323
  Receipt Date: 20110303
  Transmission Date: 20110831
  Serious: No
  Sender: FDA-Public Use
  Company Number: US-B.I. PHARMACEUTICALS,INC./RIDGEFIELD-2011-BP-07308BP

PATIENT
  Age: 79 Year
  Sex: Male

DRUGS (8)
  1. PRADAXA [Suspect]
     Indication: CEREBROVASCULAR ACCIDENT PROPHYLAXIS
  2. AMIODAROME [Concomitant]
  3. CHLORESLAM [Concomitant]
  4. EPLERENONE [Concomitant]
  5. RAMIPRIL [Concomitant]
  6. PRADAXA [Suspect]
     Indication: ATRIAL FIBRILLATION
     Dosage: 150 MG
     Route: 048
     Dates: start: 20110217
  7. PROSAC [Concomitant]
  8. LASIX [Concomitant]

REACTIONS (2)
  - URINE ANALYSIS ABNORMAL [None]
  - TREMOR [None]
